FAERS Safety Report 5833746-9 (Version None)
Quarter: 2008Q3

REPORT INFORMATION
  Report Type: 
  Country: None (occurrence: None)
  Receive Date: 20080804
  Receipt Date: 20080804
  Transmission Date: 20090109
  Serious: Yes (Life-Threatening, Hospitalization)
  Sender: FDA-Public Use
  Company Number: None

PATIENT
  Age: 64 Year

DRUGS (2)
  1. IOHEXOL [Suspect]
     Indication: ANGIOGRAM
     Dosage: 140 ML ONCE IV
     Route: 042
     Dates: start: 20080612, end: 20080612
  2. BARIUM SULFATE [Suspect]
     Indication: ANGIOGRAM
     Dosage: ONCE PO
     Route: 048
     Dates: start: 20080612, end: 20080612

REACTIONS (4)
  - ANGIOEDEMA [None]
  - DROOLING [None]
  - DYSPHAGIA [None]
  - NO THERAPEUTIC RESPONSE [None]
